FAERS Safety Report 8605090-8 (Version None)
Quarter: 2012Q3

REPORT INFORMATION
  Report Type: 
  Country: None (occurrence: None)
  Receive Date: 20120820
  Receipt Date: 20120814
  Transmission Date: 20120928
  Serious: No
  Sender: FDA-Public Use
  Company Number: US-PFIZER INC-2012067570

PATIENT
  Age: 78 Year
  Sex: Female

DRUGS (1)
  1. QUINAPRIL HCL [Suspect]
     Dosage: 20 MG, UNK
     Route: 048

REACTIONS (1)
  - MEDICATION RESIDUE [None]
